FAERS Safety Report 16687121 (Version 3)
Quarter: 2021Q4

REPORT INFORMATION
  Report Type: Report from Study
  Country: GB (occurrence: GB)
  Receive Date: 20190809
  Receipt Date: 20211028
  Transmission Date: 20220303
  Serious: Yes (Other)
  Sender: FDA-Public Use
  Company Number: GB-KARYOPHARM-2018KPT000605

PATIENT
  Age: 70 Year
  Sex: Female
  Weight: 63.4 kg

DRUGS (24)
  1. SELINEXOR [Suspect]
     Active Substance: SELINEXOR
     Indication: Plasma cell myeloma
     Dosage: 100 MG, WEEKLY
     Route: 048
     Dates: start: 20180416, end: 20180810
  2. SELINEXOR [Suspect]
     Active Substance: SELINEXOR
     Dosage: 80 MG, WEEKLY
     Route: 048
     Dates: start: 20180820
  3. BORTEZOMIB [Suspect]
     Active Substance: BORTEZOMIB
     Indication: Plasma cell myeloma
     Dosage: 1.3 MG/M2, WEEKLY
     Route: 042
     Dates: start: 20180416, end: 20180910
  4. BORTEZOMIB [Suspect]
     Active Substance: BORTEZOMIB
     Dosage: 1 MG/M2, WEEKLY
     Route: 042
     Dates: start: 20180917
  5. DEXAMETHASONE [Suspect]
     Active Substance: DEXAMETHASONE
     Indication: Plasma cell myeloma
     Dosage: 20 MG, 2X/WEEK
     Route: 048
     Dates: start: 20180416, end: 20180724
  6. DEXAMETHASONE [Suspect]
     Active Substance: DEXAMETHASONE
     Dosage: 12 MG, 2X/WEEK
     Route: 048
     Dates: start: 20180820, end: 20180917
  7. DEXAMETHASONE [Suspect]
     Active Substance: DEXAMETHASONE
     Dosage: 10 MG, 2X/WEEK
     Route: 048
     Dates: start: 20180918
  8. BISOPROLOL [Concomitant]
     Active Substance: BISOPROLOL
     Indication: Hypertension
     Dosage: 5 MG, QD
     Route: 048
     Dates: start: 2015
  9. LERCANIDIPINE HYDROCHLORIDE [Concomitant]
     Active Substance: LERCANIDIPINE HYDROCHLORIDE
     Indication: Hypertension
     Dosage: 10 MG, QD
     Route: 048
     Dates: start: 2015
  10. Aciclovir ^Alpharma^ [Concomitant]
     Indication: Prophylaxis
     Dosage: 200 MG, TID
     Route: 048
     Dates: start: 20180416
  11. Zoledronic acid ^Nichi Iko^ [Concomitant]
     Indication: Prophylaxis
     Dosage: 4 MG, 1X/12 WEEKS
     Route: 042
     Dates: start: 20180424
  12. Ondansetron 1 a pharma [Concomitant]
     Indication: Adverse event
     Dosage: 8 MG, BID
     Route: 048
     Dates: start: 20180709
  13. Lansoprazole abbott [Concomitant]
     Indication: Adverse event
     Dosage: 15 MG, QD
     Route: 048
     Dates: start: 20180709
  14. ACETAMINOPHEN [Concomitant]
     Active Substance: ACETAMINOPHEN
     Indication: Adverse event
     Dosage: 1 G, PRN
     Route: 048
     Dates: start: 20180702
  15. ANUSOL HC [Concomitant]
     Active Substance: HYDROCORTISONE
     Indication: Adverse event
     Dosage: 1 APPLICATION, UNK
     Route: 061
     Dates: start: 20180716
  16. Loperamide almus [Concomitant]
     Indication: Adverse event
     Dosage: 2 MG, PRN
     Route: 048
     Dates: start: 20180720
  17. Loperamide almus [Concomitant]
     Dosage: 2 MG, QID
     Route: 048
     Dates: start: 20181021, end: 20181022
  18. FUROSEMIDE [Concomitant]
     Active Substance: FUROSEMIDE
     Indication: Oedema peripheral
     Dosage: 40 MG, UNK
     Dates: start: 20180730
  19. FUROSEMIDE [Concomitant]
     Active Substance: FUROSEMIDE
     Dosage: 20 MG, QD
     Route: 048
     Dates: start: 20181001, end: 20181015
  20. FUROSEMIDE [Concomitant]
     Active Substance: FUROSEMIDE
     Dosage: 40 MG, QD
     Route: 048
     Dates: start: 20181016
  21. RIVAROXABAN [Concomitant]
     Active Substance: RIVAROXABAN
     Indication: Atrial fibrillation
     Dosage: 10 MG, QD
     Route: 048
     Dates: start: 20181001
  22. PIPERACILLIN SODIUM\TAZOBACTAM SODIUM [Concomitant]
     Active Substance: PIPERACILLIN SODIUM\TAZOBACTAM SODIUM
     Indication: Adverse event
     Dosage: 4.5 G, SINGLE
     Route: 042
     Dates: start: 20181019, end: 20181019
  23. AMOXICILLIN\CLAVULANIC ACID [Concomitant]
     Active Substance: AMOXICILLIN\CLAVULANIC ACID
     Indication: Adverse event
     Dosage: 625 MG, TID
     Route: 048
     Dates: start: 20181019
  24. CLARITHROMYCIN [Concomitant]
     Active Substance: CLARITHROMYCIN
     Indication: Adverse event
     Dosage: 500 MG, BID
     Route: 048
     Dates: start: 20181022

REACTIONS (2)
  - Cataract [Recovered/Resolved]
  - Cataract [Recovered/Resolved]

NARRATIVE: CASE EVENT DATE: 20181106
